FAERS Safety Report 9699246 (Version 2)
Quarter: 2013Q4

REPORT INFORMATION
  Report Type: Spontaneous
  Country: US (occurrence: US)
  Receive Date: 20131120
  Receipt Date: 20131120
  Transmission Date: 20140711
  Serious: No
  Sender: FDA-Public Use
  Company Number: US-GILEAD-2008-0014895

PATIENT
  Age: 55 Year
  Sex: Male

DRUGS (6)
  1. LETAIRIS [Suspect]
     Indication: PULMONARY ARTERIAL HYPERTENSION
     Route: 048
  2. METHADONE [Concomitant]
  3. SIMVASTATIN [Concomitant]
  4. NTG [Concomitant]
  5. VALIUM [Concomitant]
  6. MINOCYCLINE [Concomitant]

REACTIONS (4)
  - Dry mouth [Recovered/Resolved]
  - Headache [Recovered/Resolved]
  - Migraine [Recovered/Resolved]
  - Oedema [Recovered/Resolved]
